FAERS Safety Report 7631847-6 (Version None)
Quarter: 2011Q3

REPORT INFORMATION
  Report Type: 
  Country: None (occurrence: None)
  Receive Date: 20110725
  Receipt Date: 20110414
  Transmission Date: 20111222
  Serious: No
  Sender: FDA-Public Use
  Company Number: US-BRISTOL-MYERS SQUIBB COMPANY-15673551

PATIENT
  Age: 77 Year
  Sex: Female
  Weight: 91 kg

DRUGS (1)
  1. COUMADIN [Suspect]
     Dosage: 1 DF = 2.5MG ONE DAY ALTERNATING EVERY OTHER DAY WITH A HALF OF THE 2.5MG TABLET THE OTHER DAY.

REACTIONS (1)
  - INTERNATIONAL NORMALISED RATIO INCREASED [None]
